FAERS Safety Report 13115427 (Version 1)
Quarter: 2017Q1

REPORT INFORMATION
  Report Type: Spontaneous
  Country: US (occurrence: US)
  Receive Date: 20170113
  Receipt Date: 20170113
  Transmission Date: 20170428
  Serious: Yes (Hospitalization)
  Sender: FDA-Public Use
  Company Number: US-BAUSCH-BL-2017-000908

PATIENT
  Age: 73 Year
  Sex: Female
  Weight: 52.66 kg

DRUGS (5)
  1. DHEA [Concomitant]
     Active Substance: PRASTERONE
     Indication: EXCESSIVE DIETARY SUPPLEMENT INTAKE
     Route: 048
  2. WELLBUTRIN XL [Suspect]
     Active Substance: BUPROPION HYDROCHLORIDE
     Route: 048
  3. WELLBUTRIN XL [Suspect]
     Active Substance: BUPROPION HYDROCHLORIDE
     Indication: ANXIETY
     Route: 048
     Dates: start: 20161211, end: 20161212
  4. WELLBUTRIN XL [Suspect]
     Active Substance: BUPROPION HYDROCHLORIDE
     Indication: DEPRESSION
     Dosage: 12 YEARS AGO
     Route: 048
     Dates: start: 2004
  5. FISH OIL [Concomitant]
     Active Substance: FISH OIL
     Indication: EXCESSIVE DIETARY SUPPLEMENT INTAKE
     Dosage: 2 EVERY AM
     Route: 048
     Dates: start: 2011

REACTIONS (3)
  - Feeling abnormal [Recovering/Resolving]
  - Hospitalisation [Unknown]
  - Amnesia [Recovering/Resolving]

NARRATIVE: CASE EVENT DATE: 201612
